FAERS Safety Report 23318003 (Version 2)
Quarter: 2024Q1

REPORT INFORMATION
  Report Type: Spontaneous
  Country: JP (occurrence: JP)
  Receive Date: 20231219
  Receipt Date: 20240130
  Transmission Date: 20240410
  Serious: Yes (Hospitalization)
  Sender: FDA-Public Use
  Company Number: JP-002147023-NVSJ2023JP017776

PATIENT

DRUGS (4)
  1. TASIGNA [Interacting]
     Active Substance: NILOTINIB
     Indication: Chronic myeloid leukaemia
     Dosage: 300 MG, BID, 7:00 AND 19:00
     Route: 048
  2. TASIGNA [Interacting]
     Active Substance: NILOTINIB
     Dosage: UNK, DOSE REDUCED
     Route: 048
  3. VONOPRAZAN FUMARATE [Interacting]
     Active Substance: VONOPRAZAN FUMARATE
     Indication: Product used for unknown indication
     Dosage: 20 MG, QD, AFTER BREAKFAST
     Route: 048
  4. FAMOTIDINE [Concomitant]
     Active Substance: FAMOTIDINE
     Indication: Product used for unknown indication
     Dosage: 20 MG, QD, 21:00
     Route: 048

REACTIONS (3)
  - Cardiac dysfunction [Recovered/Resolved]
  - Drug interaction [Unknown]
  - Abdominal discomfort [Recovering/Resolving]
